FAERS Safety Report 13679925 (Version 3)
Quarter: 2017Q3

REPORT INFORMATION
  Report Type: Spontaneous
  Country: JP (occurrence: JP)
  Receive Date: 20170622
  Receipt Date: 20170725
  Transmission Date: 20171127
  Serious: Yes (Hospitalization)
  Sender: FDA-Public Use
  Company Number: JP-MYLANLABS-2017M1037126

PATIENT

DRUGS (2)
  1. TAMOXIFEN TAB 20MG MYL [Suspect]
     Active Substance: TAMOXIFEN CITRATE
     Indication: BREAST CANCER
     Dosage: UNK
     Route: 048
  2. TAMOXIFEN TAB 20MG MYL [Suspect]
     Active Substance: TAMOXIFEN CITRATE
     Dosage: UNK
     Route: 048
     Dates: start: 20170711

REACTIONS (2)
  - Hip surgery [Unknown]
  - Pollakiuria [Unknown]
